FAERS Safety Report 9670758 (Version 1)
Quarter: 2013Q4

REPORT INFORMATION
  Report Type: Spontaneous
  Country: JP (occurrence: JP)
  Receive Date: 20131106
  Receipt Date: 20131106
  Transmission Date: 20140711
  Serious: Yes (Other)
  Sender: FDA-Public Use
  Company Number: JP-SA-2013SA111030

PATIENT
  Sex: 0

DRUGS (4)
  1. AMARYL [Suspect]
     Indication: PRODUCT USED FOR UNKNOWN INDICATION
     Route: 048
  2. DRUG USED IN DIABETES [Concomitant]
     Route: 042
  3. PREDNISOLONE [Concomitant]
     Route: 048
  4. INSULIN [Concomitant]

REACTIONS (1)
  - Pneumonia [Unknown]
